FAERS Safety Report 6980552-8 (Version None)
Quarter: 2010Q3

REPORT INFORMATION
  Report Type: 
  Country: None (occurrence: None)
  Receive Date: 20100914
  Receipt Date: 20100908
  Transmission Date: 20110219
  Serious: Yes (Hospitalization)
  Sender: FDA-Public Use
  Company Number: PHHY2010JP59804

PATIENT
  Age: 59 Year
  Sex: Female

DRUGS (4)
  1. LAMISIL [Suspect]
     Route: 048
  2. PREDONINE [Concomitant]
     Indication: MULTIPLE SCLEROSIS
     Dosage: 10 MG
     Route: 048
  3. PREDONINE [Concomitant]
     Dosage: 500 MG
  4. PREDONINE [Concomitant]
     Dosage: 40 MG

REACTIONS (6)
  - GENERALISED ERYTHEMA [None]
  - PUSTULAR PSORIASIS [None]
  - PYREXIA [None]
  - RASH [None]
  - RASH PUSTULAR [None]
  - SKIN HYPERTROPHY [None]
